FAERS Safety Report 11786740 (Version 1)
Quarter: 2015Q4

REPORT INFORMATION
  Report Type: Spontaneous
  Country: US (occurrence: US)
  Receive Date: 20151130
  Receipt Date: 20151130
  Transmission Date: 20160305
  Serious: No
  Sender: FDA-Public Use
  Company Number: US-BAYER-2015-475388

PATIENT
  Age: 37 Year
  Sex: Female
  Weight: 88.44 kg

DRUGS (5)
  1. ALEVE [Suspect]
     Active Substance: NAPROXEN SODIUM
     Indication: INFLAMMATORY PAIN
     Dosage: 2 DF, EVERY 12 HOURS
     Route: 048
     Dates: start: 201510
  2. ALEVE [Suspect]
     Active Substance: NAPROXEN SODIUM
     Indication: INFLAMMATORY PAIN
     Dosage: 2 DF, EVERY 12 HOURS
     Route: 048
     Dates: start: 2014, end: 201510
  3. ALEVE [Suspect]
     Active Substance: NAPROXEN SODIUM
     Indication: PAIN
  4. ALEVE [Suspect]
     Active Substance: NAPROXEN SODIUM
     Indication: PAIN
  5. LEFETAMINE [Concomitant]

REACTIONS (5)
  - Product use issue [None]
  - Drug ineffective [None]
  - Product use issue [None]
  - Drug effect delayed [None]
  - Product use issue [None]

NARRATIVE: CASE EVENT DATE: 2014
